FAERS Safety Report 4748370-9 (Version None)
Quarter: 2005Q3

REPORT INFORMATION
  Report Type: 
  Country: None (occurrence: None)
  Receive Date: 20050815
  Receipt Date: 20050412
  Transmission Date: 20060218
  Serious: No
  Sender: FDA-Public Use
  Company Number: USA050495454

PATIENT
  Sex: Male

DRUGS (6)
  1. CIALIS [Suspect]
     Indication: ERECTILE DYSFUNCTION
     Dosage: 20 MG
  2. CARDURA [Concomitant]
  3. EFFEXOR [Concomitant]
  4. NORVASC [Concomitant]
  5. ZOCOR [Concomitant]
  6. VITAMINS [Concomitant]

REACTIONS (2)
  - PENIS DISORDER [None]
  - THERAPEUTIC RESPONSE DECREASED [None]
